FAERS Safety Report 6326948-9 (Version None)
Quarter: 2009Q3

REPORT INFORMATION
  Report Type: 
  Country: None (occurrence: None)
  Receive Date: 20090825
  Receipt Date: 20090813
  Transmission Date: 20100115
  Serious: Yes (Other)
  Sender: FDA-Public Use
  Company Number: PHHY2009GB29818

PATIENT
  Sex: Male

DRUGS (5)
  1. CLOZARIL [Suspect]
     Indication: SCHIZOPHRENIA, PARANOID TYPE
     Dosage: 25-150 MG
     Route: 048
     Dates: start: 20090702
  2. CLOZARIL [Suspect]
     Dosage: 75 MG, BID
     Route: 048
     Dates: end: 20090712
  3. RISPERIDONE [Concomitant]
     Dosage: UNK
     Dates: start: 20090206
  4. RISPERIDONE [Concomitant]
     Dosage: 50 MG, QW
     Route: 030
     Dates: start: 20090326
  5. RISPERIDONE [Concomitant]
     Dosage: 37.5 MG, QMO
     Route: 030
     Dates: start: 20090709

REACTIONS (9)
  - ASTHENIA [None]
  - BLOOD GLUCOSE INCREASED [None]
  - BLOOD TRIGLYCERIDES INCREASED [None]
  - DIZZINESS [None]
  - DRY MOUTH [None]
  - FATIGUE [None]
  - INCONTINENCE [None]
  - LIPIDS ABNORMAL [None]
  - WHITE BLOOD CELL COUNT INCREASED [None]
